FAERS Safety Report 5920144-2 (Version None)
Quarter: 2008Q4

REPORT INFORMATION
  Report Type: 
  Country: None (occurrence: None)
  Receive Date: 20081015
  Receipt Date: 20081015
  Transmission Date: 20090506
  Serious: Yes (Life-Threatening, Hospitalization)
  Sender: FDA-Public Use
  Company Number: None

PATIENT
  Age: 63 Year
  Sex: Male
  Weight: 68 kg

DRUGS (2)
  1. CISPLATIN [Suspect]
     Dosage: 140 MG QWEEK IV
     Route: 042
     Dates: start: 20080721, end: 20080728
  2. FLUOROURACIL [Suspect]
     Dosage: 1400 MG QWEEK IV
     Route: 042
     Dates: start: 20080721, end: 20080728

REACTIONS (19)
  - ACIDOSIS [None]
  - ANAEMIA [None]
  - BLOOD PRESSURE DECREASED [None]
  - CARDIAC ARREST [None]
  - DISSEMINATED INTRAVASCULAR COAGULATION [None]
  - HYPERCAPNIA [None]
  - HYPOXIA [None]
  - LARYNGEAL NEOPLASM [None]
  - LEUKOPENIA [None]
  - LOBAR PNEUMONIA [None]
  - MUCOSAL INFLAMMATION [None]
  - NAUSEA [None]
  - NEUTROPENIA [None]
  - ORAL PAIN [None]
  - RESPIRATORY DISTRESS [None]
  - SEPSIS [None]
  - SEPTIC SHOCK [None]
  - SINUS TACHYCARDIA [None]
  - VOMITING [None]
